FAERS Safety Report 18451352 (Version 1)
Quarter: 2020Q4

REPORT INFORMATION
  Report Type: Report from Study
  Country: GB (occurrence: GB)
  Receive Date: 20201102
  Receipt Date: 20201102
  Transmission Date: 20210114
  Serious: Yes (Hospitalization)
  Sender: FDA-Public Use
  Company Number: GB-SAMSUNG BIOEPIS-SB-2020-31128

PATIENT
  Sex: Female

DRUGS (4)
  1. IMRALDI [Suspect]
     Active Substance: ADALIMUMAB
     Dosage: WEEK TWO
     Route: 058
  2. IMRALDI [Suspect]
     Active Substance: ADALIMUMAB
     Route: 058
  3. IMRALDI [Suspect]
     Active Substance: ADALIMUMAB
     Indication: CROHN^S DISEASE
     Dosage: WEEK ZERO
     Route: 058
     Dates: start: 20200917
  4. IMRALDI [Suspect]
     Active Substance: ADALIMUMAB
     Dosage: WEEK FOUR
     Route: 058

REACTIONS (5)
  - Headache [Unknown]
  - Wrong technique in product usage process [Unknown]
  - Lethargy [Unknown]
  - Incorrect dose administered [Unknown]
  - Pruritus [Unknown]
